FAERS Safety Report 4480197-8 (Version None)
Quarter: 2004Q4

REPORT INFORMATION
  Report Type: 
  Country: None (occurrence: None)
  Receive Date: 20041018
  Receipt Date: 20041005
  Transmission Date: 20050328
  Serious: Yes (Hospitalization)
  Sender: FDA-Public Use
  Company Number: 209442

PATIENT
  Age: 40 Year
  Sex: Male

DRUGS (10)
  1. RITUXAN [Suspect]
     Indication: DIFFUSE LARGE B-CELL LYMPHOMA
     Dosage: 700 MG, INTRAVENOUS
     Route: 042
     Dates: start: 20040411
  2. METHOTREXATE [Suspect]
     Indication: DIFFUSE LARGE B-CELL LYMPHOMA
     Dosage: 15 MG, QD, INTRATHECAL
     Route: 037
  3. CYCLOPHOSPHAMIDE [Suspect]
     Indication: DIFFUSE LARGE B-CELL LYMPHOMA
     Dosage: INTRAVENOUS
     Route: 042
     Dates: start: 20040410
  4. VINCRISTINE SULFATE [Suspect]
     Indication: DIFFUSE LARGE B-CELL LYMPHOMA
     Dosage: INTRAVENOUS
     Route: 042
     Dates: start: 20040410
  5. BLEOMYCINE (BLEOMYCIN SULFATE) [Suspect]
     Indication: DIFFUSE LARGE B-CELL LYMPHOMA
     Dates: start: 20040410
  6. ADRIABLASTINE (DOXORUBICIN, DOXORUBICIN HYDROCHLORIDE) [Concomitant]
     Indication: DIFFUSE LARGE B-CELL LYMPHOMA
     Dates: start: 20040410
  7. PREDNISONE [Concomitant]
     Indication: DIFFUSE LARGE B-CELL LYMPHOMA
     Dates: start: 20040401
  8. OMEPRAZOLE [Concomitant]
  9. SUCRALFATE [Concomitant]
  10. NEUPOGEN 30 (FILGRASTIM) [Concomitant]

REACTIONS (6)
  - AGRANULOCYTOSIS [None]
  - APHTHOUS STOMATITIS [None]
  - ASTHENIA [None]
  - DYSURIA [None]
  - MUCOSAL INFLAMMATION [None]
  - POST PROCEDURAL DIARRHOEA [None]
